FAERS Safety Report 4725128-8 (Version None)
Quarter: 2005Q3

REPORT INFORMATION
  Report Type: 
  Country: None (occurrence: None)
  Receive Date: 20050721
  Receipt Date: 20050711
  Transmission Date: 20060218
  Serious: Yes (Hospitalization, Disabling)
  Sender: FDA-Public Use
  Company Number: 2005-00756

PATIENT
  Age: 67 Year
  Sex: Female

DRUGS (6)
  1. IMMUCYST [Suspect]
     Indication: BLADDER CANCER
     Dosage: 81.0 MG I.VES., BLADDER
     Route: 043
     Dates: start: 20040505, end: 20040623
  2. LOXOPROFEN SODIUM [Concomitant]
  3. GLIBENCLAMIDE [Concomitant]
  4. ATORVASTATIN CALCIUM [Concomitant]
  5. CLOTIAZEPAM [Concomitant]
  6. TRIAZOLAM [Concomitant]

REACTIONS (7)
  - BLADDER CANCER RECURRENT [None]
  - BLADDER GRANULOMA [None]
  - BLADDER STENOSIS [None]
  - CYSTITIS [None]
  - DRUG EFFECT DECREASED [None]
  - DYSURIA [None]
  - POLLAKIURIA [None]
